FAERS Safety Report 4277229-9 (Version None)
Quarter: 2004Q1

REPORT INFORMATION
  Report Type: 
  Country: None (occurrence: None)
  Receive Date: 20040120
  Receipt Date: 20040105
  Transmission Date: 20041129
  Serious: Yes (Hospitalization, Other)
  Sender: FDA-Public Use
  Company Number: 2004000585

PATIENT
  Age: 56 Year
  Sex: Male
  Weight: 83 kg

DRUGS (6)
  1. VFEND [Suspect]
     Indication: ILL-DEFINED DISORDER
     Dosage: 800 MG (DAILY); ORAL (SEE IMAGE)
     Route: 048
     Dates: start: 20031015, end: 20031030
  2. EPOETIN ALFA [Concomitant]
  3. SODIUM ALGINATE [Concomitant]
  4. TRIMETHOPRIM SULFATE [Concomitant]
  5. VALACICLOVIR [Concomitant]
  6. SODIUM BICARBONATE IN PLASTIC CONTAINER [Concomitant]

REACTIONS (29)
  - ACTIVATED PARTIAL THROMBOPLASTIN TIME PROLONGED [None]
  - ANAEMIA [None]
  - BILIRUBIN CONJUGATED INCREASED [None]
  - BLOOD BILIRUBIN INCREASED [None]
  - BLOOD PHOSPHORUS INCREASED [None]
  - C-REACTIVE PROTEIN INCREASED [None]
  - CHEST X-RAY ABNORMAL [None]
  - CONJUNCTIVITIS INFECTIVE [None]
  - EOSINOPHILIA [None]
  - EXOPHTHALMOS [None]
  - HEPATITIS CHOLESTATIC [None]
  - HEPATOSPLENOMEGALY [None]
  - HYPERKALAEMIA [None]
  - HYPERMAGNESAEMIA [None]
  - HYPERTHERMIA [None]
  - HYPOCALCAEMIA [None]
  - LEUKOCYTOSIS [None]
  - LOCALISED OEDEMA [None]
  - NAUSEA [None]
  - OEDEMA PERIPHERAL [None]
  - PHOTOSENSITIVITY REACTION [None]
  - PROTEINURIA [None]
  - PROTHROMBIN TIME PROLONGED [None]
  - RASH PAPULAR [None]
  - RENAL FAILURE [None]
  - RETINAL HAEMORRHAGE [None]
  - SKIN DESQUAMATION [None]
  - THROMBOCYTOPENIA [None]
  - VOMITING [None]
